FAERS Safety Report 5113678-4 (Version None)
Quarter: 2006Q3

REPORT INFORMATION
  Report Type: 
  Country: None (occurrence: None)
  Receive Date: 20060920
  Receipt Date: 20060914
  Transmission Date: 20061208
  Serious: Yes (Hospitalization, Other)
  Sender: FDA-Public Use
  Company Number: 2006106014

PATIENT
  Age: 62 Year
  Sex: Female
  Weight: 80 kg

DRUGS (4)
  1. TAHOR (ATORVASTATIN) [Suspect]
     Indication: BLOOD CHOLESTEROL
     Dosage: 10 MG (10 MG, 1 IN D), ORAL
     Route: 048
     Dates: start: 20041126, end: 20060710
  2. ATENOLOL [Concomitant]
  3. EFFEXOR (VENALFAXINE HYDOCHLORIDE) [Concomitant]
  4. ATEPADENE (ADENOSINE PHOSPHATE, SODIUM SALT, DEOXYRIBONUCLEIC ACID) [Concomitant]

REACTIONS (5)
  - MOVEMENT DISORDER [None]
  - POLYMYOSITIS [None]
  - RESPIRATORY DISORDER [None]
  - RHABDOMYOLYSIS [None]
  - VERTIGO [None]
